FAERS Safety Report 11022849 (Version 5)
Quarter: 2017Q1

REPORT INFORMATION
  Report Type: Spontaneous
  Country: US (occurrence: US)
  Receive Date: 20150413
  Receipt Date: 20170323
  Transmission Date: 20170428
  Serious: No
  Sender: FDA-Public Use
  Company Number: US-GLAXOSMITHKLINE-US2015047797

PATIENT
  Age: 67 Year
  Sex: Male

DRUGS (11)
  1. LORAZEPAM. [Concomitant]
     Active Substance: LORAZEPAM
     Dosage: UNK
  2. ADVAIR DISKUS [Suspect]
     Active Substance: FLUTICASONE PROPIONATE\SALMETEROL XINAFOATE
     Dosage: 250/50 MCG, 1 PUFF(S), BID
     Route: 055
  3. SPIRIVA [Suspect]
     Active Substance: TIOTROPIUM BROMIDE MONOHYDRATE
     Indication: PRODUCT USED FOR UNKNOWN INDICATION
     Dosage: UNK, U
     Route: 065
  4. CLONAZEPAM. [Concomitant]
     Active Substance: CLONAZEPAM
  5. ASPIRIN (BABY) [Concomitant]
     Active Substance: ASPIRIN
  6. ADVAIR DISKUS [Suspect]
     Active Substance: FLUTICASONE PROPIONATE\SALMETEROL XINAFOATE
     Dosage: UNKNOWN STRENGTH, 1 PUFF(S), BID
     Route: 055
     Dates: start: 2010
  7. PANTOPRAZOLE [Concomitant]
     Active Substance: PANTOPRAZOLE SODIUM
     Dosage: UNK
  8. ADVAIR DISKUS [Suspect]
     Active Substance: FLUTICASONE PROPIONATE\SALMETEROL XINAFOATE
     Indication: CHRONIC OBSTRUCTIVE PULMONARY DISEASE
     Dosage: 500/50MCG, 1 PUFF(S), BID
     Route: 055
  9. PROAIR HFA [Concomitant]
     Active Substance: ALBUTEROL SULFATE
  10. ADVAIR HFA [Suspect]
     Active Substance: FLUTICASONE PROPIONATE\SALMETEROL XINAFOATE
     Indication: CHRONIC OBSTRUCTIVE PULMONARY DISEASE
     Dosage: 2 PUFF(S), BID
     Route: 055
     Dates: start: 20151015
  11. ALBUTEROL INHALER INHALATION POWDER [Concomitant]

REACTIONS (13)
  - Exercise tolerance decreased [Recovered/Resolved]
  - Tremor [Not Recovered/Not Resolved]
  - Aphonia [Unknown]
  - Candida infection [Recovering/Resolving]
  - Dyspnoea [Not Recovered/Not Resolved]
  - Device use error [Recovered/Resolved]
  - Contusion [Unknown]
  - Dysphonia [Not Recovered/Not Resolved]
  - Laceration [Unknown]
  - Skin haemorrhage [Unknown]
  - Productive cough [Recovering/Resolving]
  - Anxiety [Not Recovered/Not Resolved]
  - Chills [Recovered/Resolved]

NARRATIVE: CASE EVENT DATE: 2011
